FAERS Safety Report 12703226 (Version 1)
Quarter: 2016Q3

REPORT INFORMATION
  Report Type: Spontaneous
  Country: NO (occurrence: NO)
  Receive Date: 20160831
  Receipt Date: 20160831
  Transmission Date: 20161109
  Serious: Yes (Life-Threatening, Hospitalization)
  Sender: FDA-Public Use
  Company Number: NO-TEVA-686796ACC

PATIENT
  Age: 47 Year
  Sex: Female
  Weight: 93 kg

DRUGS (1)
  1. TRAMADOL ACTAVIS [Suspect]
     Active Substance: TRAMADOL
     Indication: PROCEDURAL PAIN
     Dosage: 200 MILLIGRAM DAILY;
     Dates: start: 20160815, end: 20160816

REACTIONS (4)
  - Confusional state [Recovered/Resolved]
  - Hypotension [Recovered/Resolved]
  - Dyspnoea [Recovered/Resolved]
  - Oxygen saturation decreased [Recovered/Resolved]

NARRATIVE: CASE EVENT DATE: 20160816
